FAERS Safety Report 8759707 (Version 1)
Quarter: 2012Q4

REPORT INFORMATION
  Report Type: 
  Country: US (occurrence: US)
  Receive Date: 20120829
  Receipt Date: 20120829
  Transmission Date: 20130627
  Serious: No
  Sender: FDA-Public Use
  Company Number: US-009507513-1208USA011522

PATIENT

DRUGS (1)
  1. COPPERTONE WATER BABIES SPF 55 [Suspect]
     Indication: PRODUCT USED FOR UNKNOWN INDICATION
     Dosage: UNK, tid
     Route: 061
     Dates: start: 20120604

REACTIONS (1)
  - Burns second degree [Not Recovered/Not Resolved]
